FAERS Safety Report 21616347 (Version 1)
Quarter: 2022Q4

REPORT INFORMATION
  Report Type: Report from Study
  Country: CA (occurrence: None)
  Receive Date: 20221118
  Receipt Date: 20221118
  Transmission Date: 20230112
  Serious: Yes (Hospitalization)
  Sender: FDA-Public Use
  Company Number: 2020SE67310

PATIENT
  Age: 74 Year
  Sex: Male

DRUGS (8)
  1. ALVESCO [Suspect]
     Active Substance: CICLESONIDE
     Indication: Asthma
     Route: 055
  2. FORMOTEROL FUMARATE [Suspect]
     Active Substance: FORMOTEROL FUMARATE
     Indication: Asthma
     Dosage: 2 PFF , BID
     Route: 065
  3. ATROVENT [Suspect]
     Active Substance: IPRATROPIUM BROMIDE
     Indication: Asthma
     Route: 065
  4. NUCALA [Suspect]
     Active Substance: MEPOLIZUMAB
     Indication: Asthma
     Dosage: 100 MG Z MONTHLY
     Route: 042
     Dates: start: 20190910
  5. PREDNISONE [Suspect]
     Active Substance: PREDNISONE
     Indication: Asthma
     Dosage: UNKNOWN
     Route: 065
  6. ALBUTEROL SULFATE [Suspect]
     Active Substance: ALBUTEROL SULFATE
     Indication: Asthma
     Route: 055
  7. ZENHALE [Suspect]
     Active Substance: FORMOTEROL FUMARATE\MOMETASONE FUROATE
     Indication: Asthma
     Route: 065
  8. TIOTROPIUM BROMIDE [Suspect]
     Active Substance: TIOTROPIUM BROMIDE
     Dosage: 1 PUFF , QD
     Route: 065

REACTIONS (20)
  - Dyspnoea [Unknown]
  - Wheezing [Unknown]
  - Full blood count abnormal [Unknown]
  - Loss of personal independence in daily activities [Unknown]
  - Sleep disorder due to a general medical condition [Unknown]
  - Hospitalisation [Unknown]
  - Asthma [Unknown]
  - Somnolence [Unknown]
  - Decreased appetite [Unknown]
  - General physical health deterioration [Unknown]
  - Tongue disorder [Unknown]
  - Dysphonia [Unknown]
  - Memory impairment [Unknown]
  - Headache [Unknown]
  - Eyelid disorder [Unknown]
  - Pharyngeal disorder [Unknown]
  - Fatigue [Unknown]
  - Tongue exfoliation [Unknown]
  - Drug ineffective [Unknown]
  - Therapeutic product effect incomplete [Unknown]
